FAERS Safety Report 24271133 (Version 1)
Quarter: 2024Q3

REPORT INFORMATION
  Report Type: Spontaneous
  Country: US (occurrence: US)
  Receive Date: 20240831
  Receipt Date: 20240831
  Transmission Date: 20241016
  Serious: Yes (Hospitalization, Other)
  Sender: DR REDDYS
  Company Number: US-DRL-USA-SPO/USA/24/0012524

PATIENT
  Sex: Male

DRUGS (8)
  1. LEVETIRACETAM [Suspect]
     Active Substance: LEVETIRACETAM
     Indication: Seizure
  2. TOPIRAMATE [Suspect]
     Active Substance: TOPIRAMATE
     Indication: Seizure
  3. ONDANSETRON [Suspect]
     Active Substance: ONDANSETRON
     Indication: Product used for unknown indication
  4. PROPOFOL [Suspect]
     Active Substance: PROPOFOL
     Indication: General anaesthesia
     Dosage: INTRAVENOUS BOLUSES OF PROPOFOL USING A 3 ML SYRINGE WITH 5 MG GIVEN RIGHT BEFORE THE INTRODUCTION O
  5. PROPOFOL [Suspect]
     Active Substance: PROPOFOL
     Dosage: 5 MG OF INTRAVENOUS PROPOFOL BOLUS WAS GIVEN ?RIGHT BEFORE THE BRONCHOSCOPE WAS ADVANCED THROUGH ?TH
  6. PHENOBARBITAL [Suspect]
     Active Substance: PHENOBARBITAL
     Indication: Seizure
  7. GLYCOPYRROLATE [Suspect]
     Active Substance: GLYCOPYRROLATE
     Indication: General anaesthesia
     Route: 030
  8. KETAMINE [Suspect]
     Active Substance: KETAMINE
     Indication: General anaesthesia
     Route: 030

REACTIONS (3)
  - Tachycardia [Unknown]
  - Drug ineffective [Unknown]
  - Product use issue [Unknown]
